FAERS Safety Report 5327049-9 (Version None)
Quarter: 2007Q2

REPORT INFORMATION
  Report Type: 
  Country: None (occurrence: None)
  Receive Date: 20070517
  Receipt Date: 20070508
  Transmission Date: 20071010
  Serious: Yes (Hospitalization, Congenital Anomaly)
  Sender: FDA-Public Use
  Company Number: PHBS2007DK08043

PATIENT
  Age: -5 Day
  Sex: Female

DRUGS (1)
  1. TEGRETOL [Suspect]
     Dosage: MATERNAL DOSE UNKNOWN
     Route: 064

REACTIONS (7)
  - DRUG EXPOSURE DURING PREGNANCY [None]
  - EAR DISORDER [None]
  - FALLOT'S TETRALOGY [None]
  - HEART DISEASE CONGENITAL [None]
  - PYREXIA [None]
  - SURGERY [None]
  - URINARY TRACT MALFORMATION [None]
